FAERS Safety Report 24025321 (Version 1)
Quarter: 2024Q2

REPORT INFORMATION
  Report Type: Spontaneous
  Country: US (occurrence: US)
  Receive Date: 20240628
  Receipt Date: 20240628
  Transmission Date: 20240716
  Serious: No
  Sender: FDA-Public Use
  Company Number: US-ROCHE-3397890

PATIENT
  Age: 42 Year
  Sex: Female
  Weight: 67.5 kg

DRUGS (1)
  1. PHESGO [Suspect]
     Active Substance: HYALURONIDASE-ZZXF\PERTUZUMAB\TRASTUZUMAB
     Indication: HER2 positive breast cancer
     Dosage: OUTSIDE OF THIGH
     Route: 058
     Dates: start: 20230710

REACTIONS (2)
  - Off label use [Unknown]
  - Burning sensation [Unknown]

NARRATIVE: CASE EVENT DATE: 20230710
